FAERS Safety Report 24603954 (Version 2)
Quarter: 2025Q1

REPORT INFORMATION
  Report Type: Spontaneous
  Country: US (occurrence: US)
  Receive Date: 20241111
  Receipt Date: 20250310
  Transmission Date: 20250409
  Serious: Yes (Hospitalization, Other)
  Sender: SANOFI AVENTIS
  Company Number: US-SA-2024SA325432

PATIENT
  Sex: Female
  Weight: 75 kg

DRUGS (6)
  1. DUPIXENT [Suspect]
     Active Substance: DUPILUMAB
     Indication: Dermatitis atopic
     Dosage: 300 MG, QOW
     Route: 058
  2. BUMETANIDE [Concomitant]
     Active Substance: BUMETANIDE
  3. CLOBETASOL PROPIONATE [Concomitant]
     Active Substance: CLOBETASOL PROPIONATE
  4. ELIQUIS [Concomitant]
     Active Substance: APIXABAN
  5. UREA [Concomitant]
     Active Substance: UREA
  6. AMMONIUM LACTATE [Concomitant]
     Active Substance: AMMONIUM LACTATE

REACTIONS (4)
  - Pneumonia [Unknown]
  - Chronic kidney disease [Unknown]
  - Asthenia [Unknown]
  - Hunger [Unknown]
